FAERS Safety Report 10133896 (Version 2)
Quarter: 2014Q2

REPORT INFORMATION
  Report Type: Not Available
  Country: GB (occurrence: GB)
  Receive Date: 20140428
  Receipt Date: 20140521
  Transmission Date: 20141212
  Serious: Yes (Other)
  Sender: FDA-Public Use
  Company Number: GB-PURDUE-USA-2014-0113354

PATIENT
  Age: 49 Year
  Sex: Male
  Weight: 82 kg

DRUGS (6)
  1. TRAMADOL (SIMILAR TO NDA 21-745) [Suspect]
     Indication: PRODUCT USED FOR UNKNOWN INDICATION
     Dosage: UNKNOWN
  2. METRONIDAZOLE [Suspect]
     Indication: GINGIVITIS
     Dosage: 400 MG, TID
     Route: 048
     Dates: start: 20140402, end: 20140402
  3. METRONIDAZOLE [Suspect]
     Indication: GINGIVAL INFLAMMATION
  4. METRONIDAZOLE [Suspect]
     Indication: TOOTH INFECTION
  5. PARACETAMOL [Suspect]
     Indication: PRODUCT USED FOR UNKNOWN INDICATION
     Dosage: UNKNOWN
  6. MOVICOL                            /01749801/ [Concomitant]
     Indication: PRODUCT USED FOR UNKNOWN INDICATION
     Dosage: UNKNOWN

REACTIONS (8)
  - Inhibitory drug interaction [Not Recovered/Not Resolved]
  - Confusional state [Not Recovered/Not Resolved]
  - Vision blurred [Not Recovered/Not Resolved]
  - Tinnitus [Not Recovered/Not Resolved]
  - Headache [Not Recovered/Not Resolved]
  - Myalgia [Not Recovered/Not Resolved]
  - Pain [Not Recovered/Not Resolved]
  - Musculoskeletal stiffness [Unknown]
